FAERS Safety Report 10204836 (Version 1)
Quarter: 2014Q2

REPORT INFORMATION
  Report Type: Spontaneous
  Country: US (occurrence: US)
  Receive Date: 20140529
  Receipt Date: 20140529
  Transmission Date: 20141212
  Serious: No
  Sender: FDA-Public Use
  Company Number: US-009507513-1405USA014852

PATIENT
  Sex: Male

DRUGS (1)
  1. NASONEX [Suspect]
     Indication: SEASONAL ALLERGY
     Dosage: 1 SPRAY, TWICE DAILY
     Route: 045
     Dates: start: 2011

REACTIONS (3)
  - Drug dose omission [Unknown]
  - Product odour abnormal [Unknown]
  - No adverse event [Unknown]
